FAERS Safety Report 15969454 (Version 16)
Quarter: 2020Q3

REPORT INFORMATION
  Report Type: Report from Study
  Country: US (occurrence: US)
  Receive Date: 20190215
  Receipt Date: 20200807
  Transmission Date: 20201102
  Serious: Yes (Hospitalization, Other)
  Sender: FDA-Public Use
  Company Number: US-ACTELION-A-NJ2016-138765

PATIENT
  Age: 82 Year
  Sex: Female
  Weight: 52.15 kg

DRUGS (10)
  1. XARELTO [Concomitant]
     Active Substance: RIVAROXABAN
     Route: 065
  2. ORENITRAM [Suspect]
     Active Substance: TREPROSTINIL
     Dosage: 2 MG, TID
     Route: 065
  3. ORENITRAM [Suspect]
     Active Substance: TREPROSTINIL
     Dosage: 2.125 MG, TID
     Route: 065
  4. TADALAFIL. [Concomitant]
     Active Substance: TADALAFIL
  5. ADCIRCA [Concomitant]
     Active Substance: TADALAFIL
  6. ORENITRAM [Suspect]
     Active Substance: TREPROSTINIL
     Indication: PRODUCT USED FOR UNKNOWN INDICATION
     Dosage: 0.125 MG, TID
     Route: 065
  7. ORENITRAM [Suspect]
     Active Substance: TREPROSTINIL
     Dosage: 1.875 MG, TID
     Route: 048
  8. OPSUMIT [Suspect]
     Active Substance: MACITENTAN
     Indication: PULMONARY ARTERIAL HYPERTENSION
     Dosage: 10 MG, QD
     Route: 048
     Dates: start: 20140909
  9. OPSUMIT [Suspect]
     Active Substance: MACITENTAN
     Dosage: 10 MG, QD
     Route: 048
  10. TORSEMIDE. [Suspect]
     Active Substance: TORSEMIDE
     Indication: PRODUCT USED FOR UNKNOWN INDICATION
     Route: 065

REACTIONS (30)
  - Stent placement [Unknown]
  - Tinnitus [Unknown]
  - Gastric disorder [Unknown]
  - Diarrhoea [Recovering/Resolving]
  - Eructation [Unknown]
  - Ulcer [Unknown]
  - Carpal tunnel syndrome [Unknown]
  - Nasal congestion [Unknown]
  - Weight increased [Unknown]
  - Localised infection [Unknown]
  - Headache [Recovering/Resolving]
  - Musculoskeletal stiffness [Unknown]
  - Dyspnoea exertional [Not Recovered/Not Resolved]
  - Calcinosis [Unknown]
  - Deafness [Unknown]
  - Abdominal distension [Unknown]
  - Fluid retention [Unknown]
  - Chronic kidney disease [Recovered/Resolved]
  - Catheterisation cardiac [Unknown]
  - Flatulence [Unknown]
  - Drug hypersensitivity [Unknown]
  - Fall [Unknown]
  - Blood creatine increased [Recovered/Resolved]
  - Decreased appetite [Unknown]
  - Hand fracture [Unknown]
  - Abdominal pain upper [Unknown]
  - Scleroderma [Unknown]
  - Haematochezia [Unknown]
  - Heart rate increased [Unknown]
  - Syncope [Unknown]

NARRATIVE: CASE EVENT DATE: 20200428
